FAERS Safety Report 7562129-9 (Version None)
Quarter: 2011Q2

REPORT INFORMATION
  Report Type: 
  Country: None (occurrence: None)
  Receive Date: 20110622
  Receipt Date: 20110617
  Transmission Date: 20111010
  Serious: Yes (Death)
  Sender: FDA-Public Use
  Company Number: FR-BRISTOL-MYERS SQUIBB COMPANY-15842594

PATIENT
  Age: 68 Year
  Sex: Male

DRUGS (1)
  1. TAXOL [Suspect]
     Indication: LUNG NEOPLASM MALIGNANT
     Dosage: FIRST COURSE (NOS)
     Dates: start: 20110610

REACTIONS (1)
  - INTERSTITIAL LUNG DISEASE [None]
